FAERS Safety Report 4704710-8 (Version None)
Quarter: 2005Q2

REPORT INFORMATION
  Report Type: 
  Country: None (occurrence: None)
  Receive Date: 20050630
  Receipt Date: 20050617
  Transmission Date: 20051028
  Serious: Yes (Hospitalization, Other)
  Sender: FDA-Public Use
  Company Number: 2005090338

PATIENT
  Age: 58 Year
  Sex: Male
  Weight: 86.1834 kg

DRUGS (7)
  1. BEXTRA [Suspect]
     Indication: TENDONITIS
     Dosage: 20 MG (1 IN 1 D), ORAL
     Route: 048
     Dates: start: 20040715, end: 20040730
  2. CELEBREX [Suspect]
     Indication: TENDONITIS
     Dosage: ORAL
     Route: 048
     Dates: start: 20040804, end: 20040804
  3. MEDROL [Suspect]
     Indication: HYPERSENSITIVITY
     Dosage: (4 MG, DAILY INTERNAL:  EVERY DAY), ORAL
     Route: 048
     Dates: start: 20040804, end: 20040801
  4. ACCUPRIL [Concomitant]
  5. LIPITOR [Concomitant]
  6. ALLEGRA [Concomitant]
  7. ALBUTEROL [Concomitant]

REACTIONS (12)
  - ARTHRALGIA [None]
  - ASTHENIA [None]
  - CORONARY ARTERY OCCLUSION [None]
  - DIFFICULTY IN WALKING [None]
  - DRUG HYPERSENSITIVITY [None]
  - FATIGUE [None]
  - FOLLICULITIS [None]
  - MYOCARDIAL INFARCTION [None]
  - RASH [None]
  - SINUSITIS [None]
  - STEVENS-JOHNSON SYNDROME [None]
  - THROAT LESION [None]
